FAERS Safety Report 13918958 (Version 4)
Quarter: 2025Q1

REPORT INFORMATION
  Report Type: Report from Study
  Country: CA (occurrence: CA)
  Receive Date: 20170830
  Receipt Date: 20250228
  Transmission Date: 20250408
  Serious: Yes (Other)
  Sender: ROCHE
  Company Number: CA-002147023-PHHY2017CA048559

PATIENT
  Age: 49 Year
  Sex: Male
  Weight: 70.4 kg

DRUGS (42)
  1. XOLAIR [Suspect]
     Active Substance: OMALIZUMAB
     Indication: Asthma
     Dosage: 225 MG, BIW
     Route: 058
     Dates: start: 20161221
  2. XOLAIR [Suspect]
     Active Substance: OMALIZUMAB
     Route: 058
     Dates: start: 20170314
  3. XOLAIR [Suspect]
     Active Substance: OMALIZUMAB
     Route: 058
     Dates: start: 20170608
  4. XOLAIR [Suspect]
     Active Substance: OMALIZUMAB
     Route: 058
     Dates: start: 20170621
  5. XOLAIR [Suspect]
     Active Substance: OMALIZUMAB
     Route: 058
     Dates: start: 20170719
  6. XOLAIR [Suspect]
     Active Substance: OMALIZUMAB
     Route: 058
     Dates: start: 20180117
  7. XOLAIR [Suspect]
     Active Substance: OMALIZUMAB
     Route: 058
     Dates: start: 20180523
  8. XOLAIR [Suspect]
     Active Substance: OMALIZUMAB
     Route: 058
  9. XOLAIR [Suspect]
     Active Substance: OMALIZUMAB
     Route: 058
     Dates: start: 20180926
  10. XOLAIR [Suspect]
     Active Substance: OMALIZUMAB
     Route: 058
     Dates: start: 20180412
  11. XOLAIR [Suspect]
     Active Substance: OMALIZUMAB
     Route: 058
  12. XOLAIR [Suspect]
     Active Substance: OMALIZUMAB
     Route: 058
     Dates: start: 20180802
  13. XOLAIR [Suspect]
     Active Substance: OMALIZUMAB
     Route: 058
  14. XOLAIR [Suspect]
     Active Substance: OMALIZUMAB
     Route: 058
     Dates: start: 20190326
  15. XOLAIR [Suspect]
     Active Substance: OMALIZUMAB
     Route: 058
     Dates: start: 20190412
  16. XOLAIR [Suspect]
     Active Substance: OMALIZUMAB
     Route: 058
     Dates: start: 20190423
  17. XOLAIR [Suspect]
     Active Substance: OMALIZUMAB
     Route: 058
     Dates: start: 20200324
  18. XOLAIR [Suspect]
     Active Substance: OMALIZUMAB
     Route: 058
     Dates: start: 20220222
  19. XOLAIR [Suspect]
     Active Substance: OMALIZUMAB
     Dosage: 225 MG, BIW
     Route: 058
     Dates: start: 20220607
  20. XOLAIR [Suspect]
     Active Substance: OMALIZUMAB
     Dosage: 225 MG, BIW
     Route: 058
  21. XOLAIR [Suspect]
     Active Substance: OMALIZUMAB
     Route: 058
  22. XOLAIR [Suspect]
     Active Substance: OMALIZUMAB
     Dosage: 225 MG, BIW
     Route: 058
  23. XOLAIR [Suspect]
     Active Substance: OMALIZUMAB
     Route: 058
  24. XOLAIR [Suspect]
     Active Substance: OMALIZUMAB
     Route: 058
     Dates: start: 20230928
  25. XOLAIR [Suspect]
     Active Substance: OMALIZUMAB
     Route: 058
  26. XOLAIR [Suspect]
     Active Substance: OMALIZUMAB
     Route: 058
  27. XOLAIR [Suspect]
     Active Substance: OMALIZUMAB
     Route: 058
  28. NAPROXEN [Concomitant]
     Active Substance: NAPROXEN
     Indication: Product used for unknown indication
     Route: 065
  29. DEXAMETHASONE [Concomitant]
     Active Substance: DEXAMETHASONE
     Indication: Product used for unknown indication
     Dates: start: 202304
  30. MONTELUKAST [Concomitant]
     Active Substance: MONTELUKAST
     Indication: Product used for unknown indication
     Dosage: UNK, QD
     Route: 065
  31. ASMANEX [Concomitant]
     Active Substance: MOMETASONE FUROATE
     Indication: Product used for unknown indication
     Route: 065
  32. SPIRIVA [Concomitant]
     Active Substance: TIOTROPIUM BROMIDE MONOHYDRATE
     Indication: Product used for unknown indication
     Route: 065
  33. RAN-RABEPRAZOLE [Concomitant]
     Indication: Product used for unknown indication
     Route: 065
  34. VALACYCLOVIR [Concomitant]
     Active Substance: VALACYCLOVIR HYDROCHLORIDE
     Indication: Product used for unknown indication
     Route: 065
  35. MORPHINE SULFATE [Concomitant]
     Active Substance: MORPHINE SULFATE
     Indication: Product used for unknown indication
     Route: 065
  36. ZOPICLONE [Concomitant]
     Active Substance: ZOPICLONE
     Indication: Product used for unknown indication
     Dosage: QD
     Route: 065
  37. CETIRIZINE HYDROCHLORIDE [Concomitant]
     Active Substance: CETIRIZINE HYDROCHLORIDE
     Indication: Product used for unknown indication
     Route: 065
  38. PULMICORT TURBUHALER [Concomitant]
     Active Substance: BUDESONIDE
     Indication: Product used for unknown indication
  39. ZANTAC [Concomitant]
     Active Substance: RANITIDINE HYDROCHLORIDE
     Indication: Product used for unknown indication
  40. IMOVANE [Concomitant]
     Active Substance: ZOPICLONE
     Indication: Product used for unknown indication
  41. FLOVENT [Concomitant]
     Active Substance: FLUTICASONE PROPIONATE
     Indication: Product used for unknown indication
     Route: 055
     Dates: start: 201611
  42. VENTOLIN [Concomitant]
     Active Substance: ALBUTEROL SULFATE
     Indication: Wheezing
     Dosage: 10+
     Route: 055

REACTIONS (44)
  - Dyspnoea at rest [Unknown]
  - Choking [Unknown]
  - Body temperature decreased [Unknown]
  - Weight decreased [Unknown]
  - Temperature intolerance [Unknown]
  - Poor venous access [Unknown]
  - Diarrhoea infectious [Recovering/Resolving]
  - Vomiting [Recovering/Resolving]
  - Nasopharyngitis [Unknown]
  - Sensitivity to weather change [Unknown]
  - Cough [Unknown]
  - Ageusia [Not Recovered/Not Resolved]
  - Allergy to animal [Unknown]
  - Rhinorrhoea [Unknown]
  - Wheezing [Unknown]
  - Dyspnoea exertional [Recovering/Resolving]
  - Dyspnoea [Recovered/Resolved]
  - Sinus congestion [Recovering/Resolving]
  - Sinus pain [Not Recovered/Not Resolved]
  - Anosmia [Not Recovered/Not Resolved]
  - Influenza [Unknown]
  - Nasal congestion [Recovered/Resolved]
  - Oropharyngeal pain [Unknown]
  - SARS-CoV-2 test positive [Recovered/Resolved]
  - Dyspnoea [Recovered/Resolved]
  - Sneezing [Unknown]
  - Facial pain [Unknown]
  - Insomnia [Unknown]
  - Poor quality sleep [Unknown]
  - Frustration tolerance decreased [Unknown]
  - Agitation [Unknown]
  - Irritability [Unknown]
  - Discomfort [Unknown]
  - Taste disorder [Unknown]
  - Parosmia [Unknown]
  - Nasal obstruction [Unknown]
  - Chronic rhinosinusitis with nasal polyps [Unknown]
  - Headache [Unknown]
  - Nausea [Recovering/Resolving]
  - Asthma [Recovering/Resolving]
  - Fatigue [Recovered/Resolved]
  - Fatigue [Unknown]
  - Therapeutic product effect decreased [Unknown]
  - Inappropriate schedule of product administration [Unknown]

NARRATIVE: CASE EVENT DATE: 20170101
